FAERS Safety Report 9027814 (Version 1)
Quarter: 2013Q1

REPORT INFORMATION
  Report Type: Spontaneous
  Country: IT (occurrence: IT)
  Receive Date: 20130124
  Receipt Date: 20130124
  Transmission Date: 20140127
  Serious: Yes (Other)
  Sender: FDA-Public Use
  Company Number: IT-JNJFOC-20130110685

PATIENT
  Age: 14 Year
  Sex: Male

DRUGS (3)
  1. DOXORUBICIN [Suspect]
     Indication: BONE SARCOMA
     Route: 042
  2. METHOTREXATE [Suspect]
     Indication: BONE SARCOMA
     Route: 065
  3. CISPLATIN [Suspect]
     Indication: BONE SARCOMA
     Route: 065

REACTIONS (2)
  - Cutaneous tuberculosis [Unknown]
  - Off label use [Not Recovered/Not Resolved]
